FAERS Safety Report 19956604 (Version 1)
Quarter: 2021Q4

REPORT INFORMATION
  Report Type: Spontaneous
  Country: CN (occurrence: CN)
  Receive Date: 20211014
  Receipt Date: 20211014
  Transmission Date: 20220303
  Serious: Yes (Other)
  Sender: FDA-Public Use
  Company Number: CN-BAXTER-2021BAX029317

PATIENT
  Age: 74 Year
  Sex: Female

DRUGS (2)
  1. CYCLOPHOSPHAMIDE [Suspect]
     Active Substance: CYCLOPHOSPHAMIDE
     Indication: Nephrotic syndrome
     Dosage: CYCLOPHOSPHAMIDE 4.8G + SODIUM CHLORIDE INJECTION
     Route: 041
     Dates: start: 20210224, end: 20210224
  2. SODIUM CHLORIDE [Suspect]
     Active Substance: SODIUM CHLORIDE
     Indication: Nephrotic syndrome
     Dosage: SOLVENT FOR CYCLOPHOSPHAMIDE;
     Route: 041
     Dates: start: 20210224, end: 20210224

REACTIONS (1)
  - Haemorrhage subcutaneous [Recovering/Resolving]

NARRATIVE: CASE EVENT DATE: 20210301
